FAERS Safety Report 5601427-2 (Version None)
Quarter: 2007Q4

REPORT INFORMATION
  Report Type: 
  Country: None (occurrence: None)
  Receive Date: 20071231
  Receipt Date: 20070205
  Transmission Date: 20080405
  Serious: Yes (Hospitalization)
  Sender: FDA-Public Use
  Company Number: 151649USA

PATIENT
  Sex: Male
  Weight: 88.905 kg

DRUGS (1)
  1. CLOZAPINE [Suspect]
     Dosage: (600 MG),ORAL
     Route: 048
     Dates: start: 20030501

REACTIONS (2)
  - NEUTROPHIL COUNT DECREASED [None]
  - PNEUMONIA [None]
